FAERS Safety Report 10103266 (Version 2)
Quarter: 2014Q2

REPORT INFORMATION
  Report Type: Spontaneous
  Country: JP (occurrence: JP)
  Receive Date: 20140424
  Receipt Date: 20140429
  Transmission Date: 20141212
  Serious: Yes (Other)
  Sender: FDA-Public Use
  Company Number: JP-GLAXOSMITHKLINE-B0987245A

PATIENT
  Sex: Female

DRUGS (4)
  1. LAMICTAL [Suspect]
     Indication: BIPOLAR DISORDER
     Dosage: 25MG PER DAY
     Route: 048
  2. DEPAKENE [Concomitant]
     Route: 048
  3. WINTERMIN [Concomitant]
     Route: 048
  4. LENDORMIN [Concomitant]
     Route: 048

REACTIONS (6)
  - Skin disorder [Recovering/Resolving]
  - Hepatic function abnormal [Recovering/Resolving]
  - Cholangitis [Unknown]
  - Aspartate aminotransferase increased [Unknown]
  - Alanine aminotransferase increased [Unknown]
  - Blood bilirubin increased [Unknown]
